FAERS Safety Report 24642726 (Version 1)
Quarter: 2024Q4

REPORT INFORMATION
  Report Type: Spontaneous
  Country: CN (occurrence: CN)
  Receive Date: 20241120
  Receipt Date: 20241120
  Transmission Date: 20250114
  Serious: Yes (Other)
  Sender: ELI LILLY AND COMPANY
  Company Number: CN-ELI_LILLY_AND_COMPANY-CN202411006598

PATIENT
  Age: 56 Year
  Sex: Male
  Weight: 81 kg

DRUGS (3)
  1. HUMALOG MIX50/50 [Suspect]
     Active Substance: INSULIN LISPRO
     Indication: Diabetes mellitus
     Dosage: 22 U, BID
     Route: 058
     Dates: start: 2013
  2. HUMALOG MIX50/50 [Suspect]
     Active Substance: INSULIN LISPRO
     Dosage: 28 U, DAILY
     Route: 058
  3. HUMALOG MIX50/50 [Suspect]
     Active Substance: INSULIN LISPRO
     Dosage: 22 U, DAILY
     Route: 058

REACTIONS (7)
  - Cerebral infarction [Unknown]
  - Lipoma [Unknown]
  - Gout [Unknown]
  - Hyperlipidaemia [Unknown]
  - Wound [Unknown]
  - Blood glucose abnormal [Unknown]
  - Injection site pain [Unknown]
